FAERS Safety Report 5348069-4 (Version None)
Quarter: 2007Q2

REPORT INFORMATION
  Report Type: 
  Country: None (occurrence: None)
  Receive Date: 20070606
  Receipt Date: 20070525
  Transmission Date: 20071010
  Serious: Yes (Hospitalization)
  Sender: FDA-Public Use
  Company Number: US-GENENTECH-239522

PATIENT
  Sex: Female
  Weight: 56 kg

DRUGS (27)
  1. ERLOTINIB [Suspect]
     Indication: NON-SMALL CELL LUNG CANCER
     Dosage: 150 MG, QD
     Route: 048
     Dates: start: 20070302
  2. AVASTIN [Suspect]
     Indication: NON-SMALL CELL LUNG CANCER
     Dosage: 850 MG, Q3W
     Route: 041
     Dates: start: 20070302
  3. PREDNISONE TAB [Concomitant]
     Indication: CHRONIC OBSTRUCTIVE PULMONARY DISEASE
     Dosage: 20 MG, QD
     Dates: start: 20070402
  4. PREDNISONE TAB [Concomitant]
     Indication: BRONCHITIS
  5. XANAX [Concomitant]
     Indication: ANXIETY
     Dosage: 0.5 MG, PRN
     Dates: start: 20070201
  6. FENTANYL TRANSDERMAL SYSTEM [Concomitant]
     Indication: PAIN
     Dates: start: 20070415
  7. BACTRIM DS [Concomitant]
     Indication: CHRONIC OBSTRUCTIVE PULMONARY DISEASE
     Dates: start: 20070402
  8. BACTRIM DS [Concomitant]
     Indication: BRONCHITIS
  9. NICODERM [Concomitant]
     Indication: SMOKING CESSATION THERAPY
     Dates: start: 20070415
  10. ALBUTEROL [Concomitant]
     Indication: CHRONIC OBSTRUCTIVE PULMONARY DISEASE
     Dosage: UNK, QID
     Dates: start: 20070201
  11. ALBUTEROL [Concomitant]
     Indication: BRONCHITIS
  12. CALCIUM CHLORIDE [Concomitant]
     Indication: OSTEOPOROSIS
     Dosage: 500 MG, BID
     Dates: start: 20070201
  13. CLARINEX [Concomitant]
     Indication: DRUG USE FOR UNKNOWN INDICATION
     Dosage: 5 MG, QD
     Dates: start: 20070201
  14. DARVOCET-N 100 [Concomitant]
     Indication: DRUG USE FOR UNKNOWN INDICATION
     Dosage: 1 TABLET, PRN
     Dates: start: 20070202
  15. COMBIVENT [Concomitant]
     Indication: CHRONIC OBSTRUCTIVE PULMONARY DISEASE
     Dosage: 2 PUFF, PRN
     Dates: start: 20070201
  16. COMBIVENT [Concomitant]
     Indication: BRONCHITIS
  17. DILTIAZEM [Concomitant]
     Indication: DRUG USE FOR UNKNOWN INDICATION
     Dosage: 240 MG, QD
     Dates: start: 20070201
  18. LASIX [Concomitant]
     Indication: CHRONIC OBSTRUCTIVE PULMONARY DISEASE
     Dosage: 40 MG, BID
     Dates: start: 20070201
  19. LIDODERM [Concomitant]
     Indication: PAIN
     Dosage: 1 UNK, QD
     Dates: start: 20070201
  20. MULTI-VITAMIN [Concomitant]
     Indication: DRUG USE FOR UNKNOWN INDICATION
     Dosage: 1 UNK, QD
     Dates: start: 20070201
  21. NEXIUM [Concomitant]
     Indication: DYSPEPSIA
     Dosage: 40 MG, QD
     Dates: start: 20070201
  22. POTASSIUM CHLORIDE [Concomitant]
     Indication: HYPOKALAEMIA
     Dosage: 40 MEQ, BID
     Dates: start: 20070323
  23. ASCORBIC ACID [Concomitant]
     Indication: DRUG USE FOR UNKNOWN INDICATION
     Dosage: 600 MG, BID
     Dates: start: 20070201
  24. VITAMIN E [Concomitant]
     Indication: DRUG USE FOR UNKNOWN INDICATION
     Dosage: 200 MG, QD
     Dates: start: 20070201
  25. FORTICAL NASAL SPRAY [Concomitant]
     Indication: OSTEOPOROSIS
     Dates: start: 20070415
  26. TAMBOCOR [Concomitant]
     Indication: ATRIAL FIBRILLATION
     Dosage: 50 MG, QD
     Dates: start: 20070402
  27. HALDOL [Concomitant]
     Indication: ALCOHOL WITHDRAWAL SYNDROME
     Dates: start: 20070415

REACTIONS (1)
  - CHRONIC OBSTRUCTIVE PULMONARY DISEASE [None]
